FAERS Safety Report 6443657-6 (Version None)
Quarter: 2009Q4

REPORT INFORMATION
  Report Type: 
  Country: None (occurrence: None)
  Receive Date: 20091117
  Receipt Date: 20091104
  Transmission Date: 20100525
  Serious: Yes (Other)
  Sender: FDA-Public Use
  Company Number: PHHY2009BR48199

PATIENT
  Age: 80 Year
  Sex: Female

DRUGS (1)
  1. DIOVAN HCT [Suspect]

REACTIONS (5)
  - BEDRIDDEN [None]
  - DRUG ADMINISTRATION ERROR [None]
  - HEARING IMPAIRED [None]
  - HYPERTENSION [None]
  - SPINAL FRACTURE [None]
